FAERS Safety Report 12699571 (Version 1)
Quarter: 2016Q3

REPORT INFORMATION
  Report Type: Spontaneous
  Country: US (occurrence: US)
  Receive Date: 20160830
  Receipt Date: 20160830
  Transmission Date: 20161109
  Serious: Yes (Hospitalization, Other)
  Sender: FDA-Public Use
  Company Number: US-SHENZHEN TECHDOW PHARMACEUTICAL CO. LTD-US-2016TEC0000028

PATIENT
  Age: 64 Year
  Sex: Female

DRUGS (1)
  1. HEPARIN SODIUM INJECTION USP, PRESERVATIVE FREE [Suspect]
     Active Substance: HEPARIN SODIUM
     Indication: THROMBOSIS PROPHYLAXIS
     Dosage: UNK

REACTIONS (9)
  - Respiratory failure [Recovered/Resolved]
  - Cerebral infarction [Recovered/Resolved]
  - Depressed level of consciousness [Recovered/Resolved]
  - Adrenocortical insufficiency acute [Recovered/Resolved]
  - Primary adrenal insufficiency [Recovered/Resolved]
  - Neurological symptom [Recovered/Resolved]
  - Adrenal haemorrhage [Recovered/Resolved]
  - Heparin-induced thrombocytopenia [Recovered/Resolved]
  - Intracranial haematoma [Recovered/Resolved]
